FAERS Safety Report 25394972 (Version 1)
Quarter: 2025Q2

REPORT INFORMATION
  Report Type: Spontaneous
  Country: US (occurrence: None)
  Receive Date: 20250603
  Receipt Date: 20250603
  Transmission Date: 20250717
  Serious: Yes (unspecified)
  Sender: FDA-CTU
  Company Number: None

PATIENT
  Age: 55 Year
  Sex: Female

DRUGS (2)
  1. KISQALI [Suspect]
     Active Substance: RIBOCICLIB SUCCINATE
     Indication: Breast cancer female
     Dosage: FREQUENCY : DAILY;?
  2. LETROZOLE [Suspect]
     Active Substance: LETROZOLE

REACTIONS (4)
  - Alopecia [None]
  - Photosensitivity reaction [None]
  - Sinusitis [None]
  - Disease progression [None]
